FAERS Safety Report 9300152 (Version 1)
Quarter: 2012Q4

REPORT INFORMATION
  Report Type: Spontaneous
  Country: DK (occurrence: None)
  Receive Date: 20121113
  Receipt Date: 20121113
  Transmission Date: 20130627
  Serious: Yes (Other)
  Sender: FDA-Public Use
  Company Number: 2012MA013051

PATIENT
  Age: 54 Year
  Sex: Female

DRUGS (3)
  1. CITALOPRAM HYDROBROMIDE TABLETS, 40 MG (PUREPAC) (CITALOPRAM HYDROBROMIDE) [Suspect]
     Indication: ANXIETY
     Route: 048
     Dates: start: 201202
  2. CITALOPRAM HYDROBROMIDE TABLETS, 40 MG (PUREPAC) (CITALOPRAM HYDROBROMIDE) [Suspect]
     Indication: DEPRESSION
     Route: 048
     Dates: start: 201202
  3. MIRTAZAPINE [Concomitant]

REACTIONS (2)
  - Extrasystoles [None]
  - Extrasystoles [None]
